FAERS Safety Report 9926036 (Version 2)
Quarter: 2014Q1

REPORT INFORMATION
  Report Type: Spontaneous
  Country: NL (occurrence: NL)
  Receive Date: 20140226
  Receipt Date: 20140226
  Transmission Date: 20141002
  Serious: Yes (Hospitalization)
  Sender: FDA-Public Use
  Company Number: NL-ABBVIE-11P-114-0726133-00

PATIENT
  Age: 25 Year
  Sex: Female

DRUGS (4)
  1. HUMIRA [Suspect]
     Indication: CROHN^S DISEASE
     Route: 058
     Dates: start: 20100304
  2. HUMIRA [Suspect]
     Route: 058
  3. VENTOLIN [Concomitant]
     Indication: ASTHMA
     Route: 055
  4. SERETIDE [Concomitant]
     Indication: ASTHMA
     Route: 055

REACTIONS (1)
  - Caesarean section [Recovered/Resolved]
